FAERS Safety Report 13090016 (Version 1)
Quarter: 2017Q1

REPORT INFORMATION
  Report Type: Spontaneous
  Country: FR (occurrence: FR)
  Receive Date: 20170105
  Receipt Date: 20170105
  Transmission Date: 20170428
  Serious: Yes (Other)
  Sender: FDA-Public Use
  Company Number: FR-BAYER-2017-001732

PATIENT
  Age: 67 Year
  Sex: Female

DRUGS (2)
  1. CIFLOX [Suspect]
     Active Substance: CIPROFLOXACIN
     Indication: INFECTED CYST
     Dosage: UNK
     Dates: start: 20161130
  2. CEFTAZIDIME. [Suspect]
     Active Substance: CEFTAZIDIME
     Indication: INFECTED CYST
     Dosage: UNK
     Dates: start: 20161117

REACTIONS (2)
  - Asterixis [Not Recovered/Not Resolved]
  - Action tremor [Not Recovered/Not Resolved]

NARRATIVE: CASE EVENT DATE: 20161211
